FAERS Safety Report 7450348-1 (Version None)
Quarter: 2011Q2

REPORT INFORMATION
  Report Type: 
  Country: None (occurrence: None)
  Receive Date: 20110502
  Receipt Date: 20110420
  Transmission Date: 20111010
  Serious: Yes (Other)
  Sender: FDA-Public Use
  Company Number: DE-JNJFOC-20110411319

PATIENT
  Sex: Female
  Weight: 84 kg

DRUGS (2)
  1. PALEXIA [Suspect]
     Indication: PAIN
     Route: 065
  2. PANTOPRAZOLE [Concomitant]
     Route: 065

REACTIONS (2)
  - ABDOMINAL PAIN UPPER [None]
  - NAUSEA [None]
